FAERS Safety Report 18182797 (Version 1)
Quarter: 2020Q3

REPORT INFORMATION
  Report Type: Spontaneous
  Country: FR (occurrence: FR)
  Receive Date: 20200821
  Receipt Date: 20200821
  Transmission Date: 20201103
  Serious: Yes (Other)
  Sender: FDA-Public Use
  Company Number: FR-ELI_LILLY_AND_COMPANY-FR202008006282

PATIENT
  Age: 52 Year
  Sex: Male
  Weight: 79 kg

DRUGS (4)
  1. KEYTRUDA [Suspect]
     Active Substance: PEMBROLIZUMAB
     Indication: NON-SMALL CELL LUNG CANCER
     Dosage: 200 MG, UNKNOWN
     Route: 042
     Dates: start: 20200115
  2. ZOPHREN [ONDANSETRON HYDROCHLORIDE] [Suspect]
     Active Substance: ONDANSETRON
     Indication: PROPHYLAXIS OF NAUSEA AND VOMITING
     Dosage: 8 MG, UNKNOWN
     Route: 048
     Dates: start: 20200115, end: 20200618
  3. ALIMTA [Suspect]
     Active Substance: PEMETREXED DISODIUM
     Indication: NON-SMALL CELL LUNG CANCER
     Dosage: 1 G, CYCLICAL
     Route: 042
     Dates: start: 20200115, end: 202005
  4. SOLU?MEDROL [Suspect]
     Active Substance: METHYLPREDNISOLONE SODIUM SUCCINATE
     Indication: CHEMOTHERAPY SIDE EFFECT PROPHYLAXIS
     Dosage: 40 MG, UNKNOWN
     Route: 042
     Dates: start: 20200115, end: 20200618

REACTIONS (6)
  - Hepatocellular injury [Recovering/Resolving]
  - Toxic skin eruption [Recovering/Resolving]
  - Skin exfoliation [Recovering/Resolving]
  - Renal failure [Recovering/Resolving]
  - Anaemia [Recovering/Resolving]
  - Off label use [Unknown]

NARRATIVE: CASE EVENT DATE: 20200115
